FAERS Safety Report 6605111-8 (Version None)
Quarter: 2010Q1

REPORT INFORMATION
  Report Type: 
  Country: None (occurrence: None)
  Receive Date: 20100226
  Receipt Date: 20100217
  Transmission Date: 20100710
  Serious: Yes (Hospitalization, Other)
  Sender: FDA-Public Use
  Company Number: US-ELI_LILLY_AND_COMPANY-US201002004982

PATIENT
  Sex: Male
  Weight: 158.73 kg

DRUGS (17)
  1. BYETTA [Suspect]
     Indication: TYPE 2 DIABETES MELLITUS
     Dosage: 5 UG, 2/D
     Route: 058
     Dates: start: 20050101, end: 20050101
  2. BYETTA [Suspect]
     Dosage: 10 UG, 2/D
     Route: 058
     Dates: start: 20050101, end: 20071101
  3. CYMBALTA [Concomitant]
     Dosage: 60 MG, 2/D
  4. METFORMIN HYDROCHLORIDE [Concomitant]
     Dosage: 800 MG, 2/D
     Dates: end: 20071101
  5. METFORMIN HYDROCHLORIDE [Concomitant]
     Dosage: 1000 MG, 2/D
     Dates: start: 20071101
  6. LASIX [Concomitant]
     Dosage: 20 MG, DAILY (1/D)
  7. RANITIDINE [Concomitant]
     Dosage: 300 MG, 2/D
  8. KLOR-CON [Concomitant]
     Dosage: UNK, DAILY (1/D)
  9. LIPITOR [Concomitant]
     Dosage: 20 MG, DAILY (1/D)
  10. VYTORIN [Concomitant]
     Dosage: UNK, DAILY (1/D)
  11. SINGULAIR [Concomitant]
     Dosage: 10 MG, DAILY (1/D)
  12. METOCLOPRAMIDE HYDROCHLORIDE [Concomitant]
     Dosage: 5 MG, 2/D
  13. CABERGOLINE [Concomitant]
     Dosage: 0.025 MG, 2/W
  14. PROVENTIL                               /USA/ [Concomitant]
     Dosage: UNK, DAILY (1/D)
     Route: 055
  15. ADVAIR DISKUS 100/50 [Concomitant]
     Dosage: UNK, 2/D
  16. FLUTICASONE [Concomitant]
     Dosage: UNK, DAILY (1/D)
  17. ALBUTEROL [Concomitant]
     Dosage: UNK, 3/D

REACTIONS (9)
  - ABDOMINAL PAIN UPPER [None]
  - CHOLELITHIASIS [None]
  - DIARRHOEA [None]
  - MALAISE [None]
  - PANCREATIC DISORDER [None]
  - PANCREATIC ENZYMES INCREASED [None]
  - PANCREATITIS [None]
  - WEANING FAILURE [None]
  - WEIGHT DECREASED [None]
